FAERS Safety Report 22212458 (Version 1)
Quarter: 2023Q2

REPORT INFORMATION
  Report Type: Spontaneous
  Country: US (occurrence: US)
  Receive Date: 20230414
  Receipt Date: 20230414
  Transmission Date: 20230722
  Serious: Yes (Hospitalization, Disabling, Other)
  Sender: FDA-Public Use
  Company Number: US-FreseniusKabi-FK202304665

PATIENT
  Age: 34 Year
  Sex: Female

DRUGS (3)
  1. PHENYLEPHRINE [Suspect]
     Active Substance: PHENYLEPHRINE HYDROCHLORIDE
     Indication: Hypotension
     Dosage: OVER THE NEXT FIVE DAYS THE PATIENT WAS WEANED OFF OF THE VASOPRESSOR MEDICATIONS
  2. NOREPINEPHRINE [Suspect]
     Active Substance: NOREPINEPHRINE
     Indication: Hypotension
     Dosage: OVER THE NEXT FIVE DAYS THE PATIENT WAS WEANED OFF OF THE VASOPRESSOR MEDICATIONS
  3. VASOPRESSIN [Suspect]
     Active Substance: VASOPRESSIN
     Indication: Hypotension
     Dosage: OVER THE NEXT FIVE DAYS THE PATIENT WAS WEANED OFF OF THE VASOPRESSOR MEDICATIONS

REACTIONS (2)
  - Gangrene [Unknown]
  - Peripheral ischaemia [Unknown]
